FAERS Safety Report 5364673-1 (Version None)
Quarter: 2007Q2

REPORT INFORMATION
  Report Type: 
  Country: None (occurrence: None)
  Receive Date: 20070621
  Receipt Date: 20070611
  Transmission Date: 20071010
  Serious: Yes (Hospitalization)
  Sender: FDA-Public Use
  Company Number: PHHO2007BE10055

PATIENT
  Sex: Female

DRUGS (2)
  1. EXJADE [Suspect]
     Indication: IRON OVERLOAD
     Dosage: UNKNOWN
     Route: 048
  2. DESFERAL [Concomitant]
     Indication: THALASSAEMIA

REACTIONS (1)
  - COLITIS ISCHAEMIC [None]
